FAERS Safety Report 20309800 (Version 1)
Quarter: 2022Q1

REPORT INFORMATION
  Report Type: Spontaneous
  Country: CN (occurrence: CN)
  Receive Date: 20220107
  Receipt Date: 20220107
  Transmission Date: 20220423
  Serious: Yes (Hospitalization, Other)
  Sender: FDA-Public Use
  Company Number: CN-PFIZER INC-202200000922

PATIENT
  Age: 14 Year
  Sex: Female
  Weight: 46.2 kg

DRUGS (8)
  1. SOLU-MEDROL [Suspect]
     Active Substance: METHYLPREDNISOLONE SODIUM SUCCINATE
     Indication: Systemic lupus erythematosus
     Dosage: 1 G, 1X/DAY (PULSE THERAPY)
     Route: 041
     Dates: start: 20211201, end: 20211202
  2. SOLU-MEDROL [Suspect]
     Active Substance: METHYLPREDNISOLONE SODIUM SUCCINATE
     Indication: Lupus nephritis
  3. SOLU-MEDROL [Suspect]
     Active Substance: METHYLPREDNISOLONE SODIUM SUCCINATE
     Indication: Anaemia
  4. MEDROL [Suspect]
     Active Substance: METHYLPREDNISOLONE
     Indication: Systemic lupus erythematosus
     Dosage: 24 MG, 2X/DAY
     Route: 048
     Dates: start: 20211125, end: 20211130
  5. MEDROL [Suspect]
     Active Substance: METHYLPREDNISOLONE
     Indication: Lupus nephritis
  6. MEDROL [Suspect]
     Active Substance: METHYLPREDNISOLONE
     Indication: Anaemia
  7. DEXTROSE [Concomitant]
     Active Substance: DEXTROSE
     Indication: Vehicle solution use
     Dosage: 100 ML, 1X/DAY
     Route: 041
     Dates: start: 20211130, end: 20211202
  8. CEFTRIAXONE [Concomitant]
     Active Substance: CEFTRIAXONE
     Indication: Anti-infective therapy
     Dosage: UNK
     Dates: start: 20211202

REACTIONS (4)
  - Oral candidiasis [Recovering/Resolving]
  - Herpes zoster [Recovering/Resolving]
  - Blood glucose increased [Recovered/Resolved]
  - Cough [Recovering/Resolving]

NARRATIVE: CASE EVENT DATE: 20211201
